FAERS Safety Report 13661562 (Version 1)
Quarter: 2017Q2

REPORT INFORMATION
  Report Type: Report from Study
  Country: US (occurrence: US)
  Receive Date: 20170616
  Receipt Date: 20170616
  Transmission Date: 20170830
  Serious: Yes (Death)
  Sender: FDA-Public Use
  Company Number: US-PFIZER INC-2017261559

PATIENT
  Sex: Female

DRUGS (3)
  1. CARBOPLATIN. [Suspect]
     Active Substance: CARBOPLATIN
     Indication: FALLOPIAN TUBE CANCER
     Dosage: 5 MG/ML/MIN
     Route: 042
  2. PACLITAXEL. [Suspect]
     Active Substance: PACLITAXEL
     Indication: FALLOPIAN TUBE CANCER
     Dosage: 175 MG/M2, EVERY 3 WEEKS
     Route: 042
  3. RIDAFOROLIMUS [Suspect]
     Active Substance: RIDAFOROLIMUS
     Indication: FALLOPIAN TUBE CANCER
     Dosage: 10 MG FROM DAYS 1-5 AND DAYS 8-12
     Route: 048

REACTIONS (1)
  - Sepsis [Fatal]
